FAERS Safety Report 17406380 (Version 1)
Quarter: 2020Q1

REPORT INFORMATION
  Report Type: Spontaneous
  Country: US (occurrence: US)
  Receive Date: 20200127
  Receipt Date: 20200127
  Transmission Date: 20200409
  Serious: No
  Sender: FDA-Public Use
  Company Number: None

PATIENT
  Age: 5 Year

DRUGS (2)
  1. BIRTH CONTROL [Concomitant]
     Active Substance: UNSPECIFIED INGREDIENT
  2. VAPE PEN WITH THC [Suspect]
     Active Substance: .DELTA.8-TETRAHYDROCANNABINOL\DEVICE\HERBALS

REACTIONS (3)
  - Loss of consciousness [None]
  - Urinary incontinence [None]
  - Syncope [None]
